FAERS Safety Report 21131221 (Version 3)
Quarter: 2022Q4

REPORT INFORMATION
  Report Type: Report from Study
  Country: US (occurrence: US)
  Receive Date: 20220726
  Receipt Date: 20221018
  Transmission Date: 20230113
  Serious: Yes (Hospitalization, Other)
  Sender: FDA-Public Use
  Company Number: US-ABBVIE-22K-163-4430772-00

PATIENT
  Age: 63 Year
  Sex: Female

DRUGS (4)
  1. IMBRUVICA [Suspect]
     Active Substance: IBRUTINIB
     Indication: Chronic lymphocytic leukaemia
     Dosage: MISSED DOSES FOR TOTAL OF 11 DAYS
     Route: 048
     Dates: start: 20200617
  2. IMBRUVICA [Suspect]
     Active Substance: IBRUTINIB
     Indication: Chronic lymphocytic leukaemia
     Route: 048
  3. MODERNA COVID-19 VACCINE [Concomitant]
     Active Substance: ELASOMERAN
     Indication: COVID-19 immunisation
     Dosage: COVID BOOSTER VACCINE RECEIVED
     Route: 030
  4. PFIZER-BIONTECH COVID-19 VACCINE [Concomitant]
     Active Substance: TOZINAMERAN
     Indication: COVID-19 immunisation
     Route: 030

REACTIONS (8)
  - Lung cancer metastatic [Recovering/Resolving]
  - Pneumothorax [Unknown]
  - Basal cell carcinoma [Unknown]
  - Metastases to liver [Unknown]
  - Neoplasm malignant [Unknown]
  - Procedural pain [Unknown]
  - Depressed mood [Unknown]
  - Nausea [Unknown]

NARRATIVE: CASE EVENT DATE: 20220901
